FAERS Safety Report 14984158 (Version 1)
Quarter: 2018Q2

REPORT INFORMATION
  Report Type: Spontaneous
  Country: US (occurrence: US)
  Receive Date: 20180515
  Receipt Date: 20180515
  Transmission Date: 20180711
  Serious: Yes (Hospitalization)
  Sender: FDA-Public Use
  Company Number: None

PATIENT
  Sex: Male

DRUGS (4)
  1. IBRANCE [Suspect]
     Active Substance: PALBOCICLIB
     Indication: MALIGNANT CONNECTIVE TISSUE NEOPLASM
     Dosage: 100 MG QDX21DS Q28DS PO?
     Route: 048
     Dates: start: 20180425
  2. MORPHINE [Concomitant]
     Active Substance: MORPHINE
  3. PRECEDEX [Concomitant]
     Active Substance: DEXMEDETOMIDINE HYDROCHLORIDE
  4. ZOLINZA [Suspect]
     Active Substance: VORINOSTAT
     Indication: MALIGNANT CONNECTIVE TISSUE NEOPLASM
     Dosage: 300 MG QDX5DS PER WEEK PO?
     Route: 048
     Dates: start: 20180425

REACTIONS (4)
  - Therapy cessation [None]
  - Haemorrhage [None]
  - Oedema [None]
  - Drug dose omission [None]

NARRATIVE: CASE EVENT DATE: 2018
